FAERS Safety Report 13667517 (Version 1)
Quarter: 2017Q2

REPORT INFORMATION
  Report Type: Spontaneous
  Country: US (occurrence: US)
  Receive Date: 20170619
  Receipt Date: 20170619
  Transmission Date: 20170830
  Serious: No
  Sender: FDA-Public Use
  Company Number: None

PATIENT
  Age: 10 Year
  Sex: Female

DRUGS (1)
  1. LUPRON DEPOT-PED [Suspect]
     Active Substance: LEUPROLIDE ACETATE
     Indication: PRECOCIOUS PUBERTY
     Dosage: FREQUENCY - EVERY 3 MONTHS
     Route: 028
     Dates: start: 20160616

REACTIONS (4)
  - Gait disturbance [None]
  - Injection site pain [None]
  - Injection site reaction [None]
  - Injection site erythema [None]

NARRATIVE: CASE EVENT DATE: 20170310
